FAERS Safety Report 9507461 (Version 1)
Quarter: 2013Q3

REPORT INFORMATION
  Report Type: Spontaneous
  Country: US (occurrence: None)
  Receive Date: 20130906
  Receipt Date: 20130906
  Transmission Date: 20140515
  Serious: No
  Sender: FDA-Public Use
  Company Number: None

PATIENT
  Age: 52 Year
  Sex: Female
  Weight: 53.52 kg

DRUGS (4)
  1. VANCOMYCIN [Suspect]
     Indication: OSTEOMYELITIS
     Dosage: ONCE DAILY INTO A VEIN
     Dates: start: 20130803, end: 20130913
  2. HYDROCHLOROTHIAZIDE [Concomitant]
  3. AMBIAN [Concomitant]
  4. NORCO [Concomitant]

REACTIONS (2)
  - Red man syndrome [None]
  - Infusion related reaction [None]
